FAERS Safety Report 16727958 (Version 3)
Quarter: 2019Q3

REPORT INFORMATION
  Report Type: Report from Study
  Country: None (occurrence: CH)
  Receive Date: 20190822
  Receipt Date: 20190913
  Transmission Date: 20191005
  Serious: Yes (Death, Hospitalization, Other)
  Sender: FDA-Public Use
  Company Number: CH-ABBVIE-19K-151-2894850-00

PATIENT
  Age: 73 Year
  Sex: Male

DRUGS (4)
  1. DUODOPA [Suspect]
     Active Substance: CARBIDOPA\LEVODOPA
     Dosage: MD: 4.1 ML; CRD: 4.1 ML/H CRN: 3.1 ML/H; EXTRA DOSE: 1.6 ML 24H THERAPY
     Route: 050
     Dates: start: 201908
  2. DUODOPA [Suspect]
     Active Substance: CARBIDOPA\LEVODOPA
     Dosage: MR DOSE:5 ML; CONT RATE DAY:4.1 ML/H;  CONT RATE NIGHT:3.1; EXTRA DOSE:3.2 ML 24 H THERAPY
     Route: 050
     Dates: start: 20171222, end: 20190816
  3. DUODOPA [Suspect]
     Active Substance: CARBIDOPA\LEVODOPA
     Dosage: MD: UNKNOWN CHANGE; CRD: 4.1 ML/H;CRN: 3.1; EXTRA DOSE: 3.2 ML 24 H THERAPY
     Route: 050
     Dates: start: 20190816
  4. DUODOPA [Suspect]
     Active Substance: CARBIDOPA\LEVODOPA
     Indication: PARKINSON^S DISEASE
     Route: 050
     Dates: start: 20110207, end: 20171222

REACTIONS (2)
  - Mental disorder [Not Recovered/Not Resolved]
  - Death [Fatal]

NARRATIVE: CASE EVENT DATE: 20190823
